FAERS Safety Report 16666834 (Version 1)
Quarter: 2019Q3

REPORT INFORMATION
  Report Type: Spontaneous
  Country: US (occurrence: US)
  Receive Date: 20190805
  Receipt Date: 20190805
  Transmission Date: 20191004
  Serious: No
  Sender: FDA-Public Use
  Company Number: US-ACCORD-071208

PATIENT
  Age: 48 Year
  Sex: Female
  Weight: 56.7 kg

DRUGS (1)
  1. ANASTROZOLE ACCORD [Suspect]
     Active Substance: ANASTROZOLE
     Indication: BREAST CANCER
     Dosage: STRENGTH: 1 MG
     Route: 048
     Dates: start: 201701

REACTIONS (7)
  - Asthenia [Not Recovered/Not Resolved]
  - Hot flush [Not Recovered/Not Resolved]
  - Night sweats [Not Recovered/Not Resolved]
  - Trigger finger [Not Recovered/Not Resolved]
  - Dysstasia [Not Recovered/Not Resolved]
  - Gait disturbance [Not Recovered/Not Resolved]
  - Arthralgia [Not Recovered/Not Resolved]
